FAERS Safety Report 19282119 (Version 2)
Quarter: 2021Q3

REPORT INFORMATION
  Report Type: Report from Study
  Country: None (occurrence: US)
  Receive Date: 20210521
  Receipt Date: 20210818
  Transmission Date: 20211014
  Serious: Yes (Hospitalization, Other)
  Sender: FDA-Public Use
  Company Number: US-ABBVIE-21K-163-3913602-00

PATIENT
  Age: 77 Year
  Sex: Male

DRUGS (1)
  1. HUMIRA [Suspect]
     Active Substance: ADALIMUMAB
     Indication: RHEUMATOID ARTHRITIS
     Route: 058

REACTIONS (9)
  - Nephrolithiasis [Recovered/Resolved]
  - Abdominal discomfort [Unknown]
  - Cough [Recovered/Resolved with Sequelae]
  - Injection site hypoaesthesia [Recovered/Resolved with Sequelae]
  - Colostomy [Unknown]
  - Food poisoning [Not Recovered/Not Resolved]
  - Feeling hot [Not Recovered/Not Resolved]
  - Rheumatoid arthritis [Not Recovered/Not Resolved]
  - Pain [Not Recovered/Not Resolved]

NARRATIVE: CASE EVENT DATE: 202012
